FAERS Safety Report 4288249-2 (Version None)
Quarter: 2004Q1

REPORT INFORMATION
  Report Type: 
  Country: None (occurrence: None)
  Receive Date: 20040209
  Receipt Date: 20030912
  Transmission Date: 20041129
  Serious: No
  Sender: FDA-Public Use
  Company Number: US-GLAXOSMITHKLINE-A0425691A

PATIENT
  Sex: Female

DRUGS (3)
  1. PAXIL [Suspect]
     Indication: DEPRESSION
     Dosage: 10MG PER DAY
     Route: 048
     Dates: start: 19950101, end: 20030501
  2. LEVOXYL [Concomitant]
  3. DICLOFENAC [Concomitant]

REACTIONS (3)
  - HEADACHE [None]
  - MUSCLE CRAMP [None]
  - NAUSEA [None]
